FAERS Safety Report 9957501 (Version 1)
Quarter: 2014Q1

REPORT INFORMATION
  Report Type: Report from Study
  Country: US (occurrence: US)
  Receive Date: 20140304
  Receipt Date: 20140304
  Transmission Date: 20141002
  Serious: No
  Sender: FDA-Public Use
  Company Number: US-ABBVIE-13P-163-1094525-00

PATIENT
  Age: 38 Year
  Sex: Male

DRUGS (6)
  1. HUMIRA [Suspect]
     Indication: CROHN^S DISEASE
     Dates: start: 20130508
  2. PREDNISONE [Concomitant]
     Indication: CROHN^S DISEASE
     Route: 048
  3. CELEXA [Concomitant]
     Indication: ANXIETY
     Route: 048
  4. TRAMADOL [Concomitant]
     Indication: PAIN
     Route: 048
  5. SOMA [Concomitant]
     Indication: PAIN
     Route: 048
  6. HYDROXYZINE [Concomitant]
     Indication: ANXIETY
     Route: 048

REACTIONS (1)
  - Tooth infection [Recovering/Resolving]
